FAERS Safety Report 7247700-6 (Version None)
Quarter: 2011Q1

REPORT INFORMATION
  Report Type: 
  Country: None (occurrence: None)
  Receive Date: 20110127
  Receipt Date: 20110118
  Transmission Date: 20110831
  Serious: Yes (Congenital Anomaly)
  Sender: FDA-Public Use
  Company Number: US-MERCK-1007USA02118B1

PATIENT
  Age: 1 Day
  Sex: Male
  Weight: 3 kg

DRUGS (9)
  1. REYATAZ [Suspect]
     Route: 064
     Dates: start: 20090924, end: 20091015
  2. VIREAD [Suspect]
     Route: 064
     Dates: start: 20091015
  3. ISENTRESS [Suspect]
     Route: 064
     Dates: start: 20091217
  4. EPIVIR [Suspect]
     Route: 064
     Dates: start: 20090924
  5. KALETRA [Suspect]
     Route: 064
     Dates: start: 20090728, end: 20090924
  6. NORVIR [Suspect]
     Route: 064
     Dates: start: 20091015
  7. TRUVADA [Suspect]
     Route: 064
  8. LEXIVA [Suspect]
     Route: 064
     Dates: start: 20091015, end: 20091217
  9. COMBIVIR [Suspect]
     Route: 064
     Dates: start: 20090728, end: 20090924

REACTIONS (3)
  - ADRENOGENITAL SYNDROME [None]
  - CONGENITAL HYDRONEPHROSIS [None]
  - DRUG EXPOSURE DURING PREGNANCY [None]
